APPROVED DRUG PRODUCT: LINEZOLID
Active Ingredient: LINEZOLID
Strength: 100MG/5ML
Dosage Form/Route: FOR SUSPENSION;ORAL
Application: A200068 | Product #001 | TE Code: AB
Applicant: HIKMA PHARMACEUTICALS USA INC
Approved: Jun 3, 2015 | RLD: No | RS: No | Type: RX